FAERS Safety Report 21629538 (Version 2)
Quarter: 2022Q4

REPORT INFORMATION
  Report Type: Spontaneous
  Country: AU (occurrence: AU)
  Receive Date: 20221122
  Receipt Date: 20221223
  Transmission Date: 20230113
  Serious: Yes (Other)
  Sender: FDA-Public Use
  Company Number: AU-Accord-287035

PATIENT
  Sex: Male

DRUGS (1)
  1. LACOSAMIDE [Suspect]
     Active Substance: LACOSAMIDE
     Indication: Product used for unknown indication
     Dosage: STRENGTH: 100 AN 200 MG, 56 TABLETS

REACTIONS (3)
  - Seizure [Unknown]
  - Product substitution issue [Unknown]
  - Drug ineffective [Unknown]
